FAERS Safety Report 19081180 (Version 3)
Quarter: 2021Q2

REPORT INFORMATION
  Report Type: Spontaneous
  Country: FR (occurrence: FR)
  Receive Date: 20210331
  Receipt Date: 20210624
  Transmission Date: 20210717
  Serious: Yes (Other)
  Sender: FDA-Public Use
  Company Number: FR-US-PROVELL PHARMACEUTICALS LLC-9222833

PATIENT
  Sex: Female

DRUGS (2)
  1. LEVOTHYROX [Suspect]
     Active Substance: LEVOTHYROXINE
     Indication: PRODUCT USED FOR UNKNOWN INDICATION
     Dates: start: 2019
  2. EUTHYROX [Suspect]
     Active Substance: LEVOTHYROXINE SODIUM
     Indication: PRODUCT USED FOR UNKNOWN INDICATION
     Dates: end: 20210323

REACTIONS (8)
  - Suicidal ideation [Unknown]
  - Tachycardia [Unknown]
  - Headache [Unknown]
  - Palpitations [Unknown]
  - Insomnia [Unknown]
  - Fatigue [Unknown]
  - Muscle spasms [Unknown]
  - Vertigo [Unknown]
